FAERS Safety Report 6511299-X (Version None)
Quarter: 2009Q4

REPORT INFORMATION
  Report Type: 
  Country: None (occurrence: None)
  Receive Date: 20091222
  Receipt Date: 20090316
  Transmission Date: 20100525
  Serious: No
  Sender: FDA-Public Use
  Company Number: US-ASTRAZENECA-2009UW07537

PATIENT
  Sex: Male
  Weight: 90.7 kg

DRUGS (3)
  1. CRESTOR [Suspect]
     Indication: BLOOD CHOLESTEROL INCREASED
     Route: 048
  2. WELCHOL [Concomitant]
  3. NIASPAN [Concomitant]

REACTIONS (5)
  - ARRHYTHMIA [None]
  - BLOOD CREATINE PHOSPHOKINASE [None]
  - CARDIAC VALVE DISEASE [None]
  - OEDEMA PERIPHERAL [None]
  - PAIN IN EXTREMITY [None]
